FAERS Safety Report 5025820-4 (Version None)
Quarter: 2006Q2

REPORT INFORMATION
  Report Type: 
  Country: None (occurrence: None)
  Receive Date: 20060614
  Receipt Date: 20060605
  Transmission Date: 20061013
  Serious: Yes (Death, Other)
  Sender: FDA-Public Use
  Company Number: SP-200002121

PATIENT
  Age: 62 Year
  Sex: Male

DRUGS (8)
  1. REMICADE [Suspect]
     Indication: CROHN'S DISEASE
     Route: 065
     Dates: start: 19951101
  2. AZATHIOPRINE [Suspect]
     Indication: CROHN'S DISEASE
     Route: 065
  3. AZATHIOPRINE [Suspect]
     Route: 065
     Dates: start: 19950101
  4. PREDNISONE [Concomitant]
     Route: 065
  5. CYTOXAN [Concomitant]
     Route: 065
     Dates: start: 19960901
  6. ADRIAMYCIN PFS [Concomitant]
     Route: 065
     Dates: start: 19960901
  7. VINCRISTINE [Concomitant]
     Route: 065
     Dates: start: 19960901
  8. PREDNISONE [Concomitant]
     Route: 065
     Dates: start: 19960901

REACTIONS (9)
  - ASPERGILLOSIS [None]
  - FISTULA [None]
  - NON-HODGKIN'S LYMPHOMA [None]
  - POLYP [None]
  - PYREXIA [None]
  - RENAL FAILURE [None]
  - RESPIRATORY FAILURE [None]
  - SPLENIC INFARCTION [None]
  - THROMBOCYTOPENIA [None]
